FAERS Safety Report 6729936-3 (Version None)
Quarter: 2010Q2

REPORT INFORMATION
  Report Type: 
  Country: None (occurrence: None)
  Receive Date: 20100518
  Receipt Date: 20100506
  Transmission Date: 20101027
  Serious: Yes (Death, Other)
  Sender: FDA-Public Use
  Company Number: JP-PFIZER INC-2009219207

PATIENT
  Age: 72 Year
  Sex: Male

DRUGS (11)
  1. SUNITINIB MALATE [Suspect]
     Indication: RENAL CELL CARCINOMA
     Dosage: 37.5 MG, 1X/DAY
     Route: 048
     Dates: start: 20090325, end: 20090527
  2. GABAPENTIN [Concomitant]
     Indication: NEURALGIA
     Dosage: UNK
     Route: 048
  3. MAGNESIUM OXIDE [Concomitant]
     Indication: CONSTIPATION
     Dosage: UNK
     Route: 048
  4. GASTER OD [Concomitant]
     Indication: ABDOMINAL PAIN UPPER
     Dosage: UNK
     Route: 048
  5. ADALAT CC [Concomitant]
     Indication: HYPERTENSION
     Dosage: UNK
     Route: 048
  6. LOXONIN [Concomitant]
     Indication: BACK PAIN
     Dosage: UNK
     Route: 048
  7. SELBEX [Concomitant]
     Indication: BACK PAIN
     Dosage: UNK
     Route: 048
  8. CYANOCOBALAMIN [Concomitant]
     Indication: NEURALGIA
     Dosage: UNK
     Route: 048
  9. AMITRIPTYLINE HCL [Concomitant]
     Indication: NEURALGIA
     Dosage: UNK
     Route: 048
  10. PURSENNID [Concomitant]
     Indication: CONSTIPATION
     Dosage: UNK
     Route: 048
  11. KERLONG [Concomitant]
     Indication: HYPERTENSION
     Dosage: UNK
     Route: 048

REACTIONS (3)
  - DISEASE PROGRESSION [None]
  - PLATELET COUNT DECREASED [None]
  - RENAL CELL CARCINOMA [None]
